FAERS Safety Report 9771995 (Version 1)
Quarter: 2013Q4

REPORT INFORMATION
  Report Type: Spontaneous
  Country: US (occurrence: None)
  Receive Date: 20131023
  Receipt Date: 20131023
  Transmission Date: 20140711
  Serious: Yes (Death, Hospitalization)
  Sender: FDA-Public Use
  Company Number: UTC-037351

PATIENT
  Age: 54 Year
  Sex: Female
  Weight: 75 kg

DRUGS (7)
  1. REMODULIN [Suspect]
     Indication: PULMONARY ARTERIAL HYPERTENSION
     Dosage: 113.76 UG/KG (0.079 UG/KG, 1 IN 1 MIN), SUBCUTANEOUS
     Route: 058
     Dates: start: 201210
  2. ADVAIR (SERETIDE) [Concomitant]
  3. GABAPENTIN [Concomitant]
  4. LASIX (FUROSEMIDE) [Concomitant]
  5. LEVOXYL (LEVOTHYROXINE SODIUM) [Concomitant]
  6. SPIRIVA (TIOTROPIUM BROMIDE) (TIOTROPIUM BROMIDE) [Concomitant]
  7. SPIRONOLACTONE [Concomitant]

REACTIONS (12)
  - Respiratory failure [None]
  - Melaena [None]
  - Abdominal pain [None]
  - Hypotension [None]
  - Haematemesis [None]
  - Pneumothorax [None]
  - Varices oesophageal [None]
  - Gastric varices [None]
  - Cardiac arrest [None]
  - Hypoxia [None]
  - Aspiration [None]
  - Blood gases abnormal [None]
